FAERS Safety Report 6847776-1 (Version None)
Quarter: 2010Q3

REPORT INFORMATION
  Report Type: 
  Country: None (occurrence: None)
  Receive Date: 20100716
  Receipt Date: 20090914
  Transmission Date: 20110219
  Serious: Yes (Other)
  Sender: FDA-Public Use
  Company Number: DE-SANOFI-AVENTIS-200912327DE

PATIENT
  Sex: Female
  Weight: 63 kg

DRUGS (5)
  1. ENOXAPARIN SODIUM [Suspect]
     Indication: FACTOR V LEIDEN MUTATION
     Dosage: DOSE UNIT: 20 MG
     Route: 058
     Dates: start: 20090807, end: 20091201
  2. ENOXAPARIN SODIUM [Suspect]
     Route: 058
     Dates: start: 20091201, end: 20100501
  3. LEVOTHYROXINE SODIUM [Suspect]
     Indication: HYPOTHYROIDISM
     Route: 048
     Dates: start: 20050101
  4. MAGNETRANS FORTE [Suspect]
     Indication: PRODUCT USED FOR UNKNOWN INDICATION
     Route: 048
     Dates: start: 20090901, end: 20100201
  5. LEFAX [Suspect]
     Indication: PRODUCT USED FOR UNKNOWN INDICATION
     Dosage: UP TO 8 TABLETS DAILY
     Route: 065
     Dates: start: 20090901, end: 20100301

REACTIONS (4)
  - DRUG EXPOSURE DURING PREGNANCY [None]
  - NAUSEA [None]
  - SHORTENED CERVIX [None]
  - VOMITING [None]
